FAERS Safety Report 22605245 (Version 1)
Quarter: 2023Q2

REPORT INFORMATION
  Report Type: Spontaneous
  Country: ES (occurrence: ES)
  Receive Date: 20230615
  Receipt Date: 20230615
  Transmission Date: 20230721
  Serious: Yes (Hospitalization, Other)
  Sender: FDA-Public Use
  Company Number: None

PATIENT
  Age: 70 Year
  Sex: Male

DRUGS (8)
  1. OXALIPLATIN [Suspect]
     Active Substance: OXALIPLATIN
     Indication: Adenocarcinoma of colon
     Dosage: 143 MG, TOTAL
     Route: 042
     Dates: start: 20230329, end: 20230329
  2. FLUOROURACIL [Suspect]
     Active Substance: FLUOROURACIL
     Indication: Adenocarcinoma of colon
     Dosage: 4032 MG, TOTAL
     Route: 042
     Dates: start: 20230329, end: 20230331
  3. FLUOROURACIL [Suspect]
     Active Substance: FLUOROURACIL
     Dosage: 672 MG, TOTAL
     Route: 042
     Dates: start: 20230329, end: 20230329
  4. ESOMEPRAZOL TEVA [Concomitant]
     Dosage: 20 MG, QD
     Route: 048
     Dates: start: 20121015
  5. CALCIFEDIOL [Concomitant]
     Active Substance: CALCIFEDIOL
     Dosage: 0.26 MG, Q15D
     Route: 048
     Dates: start: 20160516
  6. HYDROCHLOROTHIAZIDE\TELMISARTAN [Concomitant]
     Active Substance: HYDROCHLOROTHIAZIDE\TELMISARTAN
     Dosage: 1 DF, QD
     Route: 048
     Dates: start: 20120604
  7. FOLIC ACID [Concomitant]
     Active Substance: FOLIC ACID
     Dosage: 672 MG, TOTAL
     Route: 042
     Dates: start: 20230329, end: 20230329
  8. CARBIDOPA\LEVODOPA [Concomitant]
     Active Substance: CARBIDOPA\LEVODOPA
     Dosage: 1 DF, Q8H
     Route: 048
     Dates: start: 20220708

REACTIONS (1)
  - Arteriospasm coronary [Recovered/Resolved]

NARRATIVE: CASE EVENT DATE: 20230401
